FAERS Safety Report 18456495 (Version 2)
Quarter: 2020Q4

REPORT INFORMATION
  Report Type: Spontaneous
  Country: LB (occurrence: LB)
  Receive Date: 20201103
  Receipt Date: 20201118
  Transmission Date: 20210114
  Serious: Yes (Death, Hospitalization, Other)
  Sender: FDA-Public Use
  Company Number: LB-ASTELLAS-2020US038403

PATIENT
  Age: 80 Year
  Sex: Male

DRUGS (2)
  1. PRIVAST [Concomitant]
     Indication: PRODUCT USED FOR UNKNOWN INDICATION
     Dosage: UNK UNK, ONCE DAILY
     Route: 065
     Dates: start: 2006
  2. XTANDI [Suspect]
     Active Substance: ENZALUTAMIDE
     Indication: PROSTATE CANCER
     Route: 048
     Dates: start: 202008, end: 20200926

REACTIONS (4)
  - Blood albumin increased [Fatal]
  - Nephrolithiasis [Fatal]
  - Malignant neoplasm progression [Fatal]
  - Cardiac failure [Fatal]

NARRATIVE: CASE EVENT DATE: 202007
